FAERS Safety Report 4555481-X (Version None)
Quarter: 2005Q1

REPORT INFORMATION
  Report Type: 
  Country: None (occurrence: None)
  Receive Date: 20050119
  Receipt Date: 20050111
  Transmission Date: 20050727
  Serious: Yes (Other)
  Sender: FDA-Public Use
  Company Number: 200510148FR

PATIENT
  Age: 55 Year
  Sex: Female

DRUGS (4)
  1. ARAVA [Suspect]
     Indication: RHEUMATOID ARTHRITIS
     Route: 048
     Dates: start: 20030401
  2. CORTANCYL [Concomitant]
     Route: 048
  3. ACTONEL [Concomitant]
     Route: 048
  4. KENACORT [Concomitant]
     Dates: start: 20041201, end: 20041201

REACTIONS (1)
  - PHLEBITIS SUPERFICIAL [None]
